FAERS Safety Report 9435404 (Version 1)
Quarter: 2013Q3

REPORT INFORMATION
  Report Type: Spontaneous
  Country: FR (occurrence: FR)
  Receive Date: 20130801
  Receipt Date: 20130801
  Transmission Date: 20140515
  Serious: Yes (Other)
  Sender: FDA-Public Use
  Company Number: FR-009507513-1307FRA008847

PATIENT
  Age: 67 Year
  Sex: Male
  Weight: 77 kg

DRUGS (1)
  1. COSOPT, COLLYRE EN SOLUTION RECIPIENT UNIDOSE [Suspect]
     Indication: GLAUCOMA
     Dosage: 1 DF, QD
     Route: 047
     Dates: start: 20130712

REACTIONS (3)
  - Eyelid injury [Recovered/Resolved]
  - Product package associated injury [Unknown]
  - Eyelid erosion [Recovered/Resolved]
